FAERS Safety Report 21958704 (Version 1)
Quarter: 2023Q1

REPORT INFORMATION
  Report Type: Report from Study
  Country: AU (occurrence: AU)
  Receive Date: 20230206
  Receipt Date: 20230206
  Transmission Date: 20230418
  Serious: Yes (Other)
  Sender: FDA-Public Use
  Company Number: AU-ABBVIE-4295511

PATIENT
  Sex: Male
  Weight: 98 kg

DRUGS (4)
  1. LEUPROLIDE ACETATE [Suspect]
     Active Substance: LEUPROLIDE ACETATE
     Indication: Prostate cancer
     Route: 030
     Dates: start: 20201114
  2. ZYTIGA [Concomitant]
     Active Substance: ABIRATERONE ACETATE
     Indication: Prostate cancer
  3. STIOLTO RESPIMAT [Concomitant]
     Active Substance: OLODATEROL HYDROCHLORIDE\TIOTROPIUM BROMIDE MONOHYDRATE
     Indication: Chronic obstructive pulmonary disease
     Dosage: 2 PUFFS DAILY
  4. DEXAMETHASONE [Concomitant]
     Active Substance: DEXAMETHASONE
     Indication: Prostate cancer

REACTIONS (7)
  - Urinary tract obstruction [Not Recovered/Not Resolved]
  - Fall [Not Recovered/Not Resolved]
  - Exposure to chemical pollution [Unknown]
  - Chronic obstructive pulmonary disease [Unknown]
  - Diverticulum [Unknown]
  - Pleural fibrosis [Unknown]
  - Prostate cancer metastatic [Unknown]
